FAERS Safety Report 9202238 (Version 1)
Quarter: 2013Q2

REPORT INFORMATION
  Report Type: Spontaneous
  Country: CA (occurrence: CA)
  Receive Date: 20130401
  Receipt Date: 20130401
  Transmission Date: 20140414
  Serious: Yes (Disabling)
  Sender: FDA-Public Use
  Company Number: CA-B.I. PHARMACEUTICALS,INC./RIDGEFIELD-2013-CN-00479CN

PATIENT
  Age: 87 Year
  Sex: Male

DRUGS (10)
  1. PRADAX [Suspect]
     Indication: ATRIAL FIBRILLATION
     Dates: start: 20130118
  2. AMIODARONE [Concomitant]
  3. ATACAND-PLUS [Concomitant]
  4. DUCUSATE [Concomitant]
  5. APO-TERAZOSIN [Concomitant]
  6. APO-OMEPRAZOLE [Concomitant]
  7. TYLENOL [Concomitant]
     Dosage: 2 TYLENOL MORNING AND NIGHT
  8. MUCILLIUM [Concomitant]
  9. VITAMIN D [Concomitant]
  10. MULTI-VITAMIN FOR MEN [Concomitant]

REACTIONS (2)
  - Asthenia [Unknown]
  - Dyspnoea [Unknown]
